FAERS Safety Report 22535304 (Version 4)
Quarter: 2025Q1

REPORT INFORMATION
  Report Type: Spontaneous
  Country: CA (occurrence: CA)
  Receive Date: 20230608
  Receipt Date: 20250221
  Transmission Date: 20250408
  Serious: Yes (Life-Threatening, Hospitalization, Other)
  Sender: MYLAN
  Company Number: CA-MYLANLABS-2023M1058038

PATIENT
  Sex: Male

DRUGS (24)
  1. GABAPENTIN [Suspect]
     Active Substance: GABAPENTIN
     Indication: Foetal exposure during pregnancy
     Dosage: 100 MILLIGRAM, QD
     Route: 064
  2. GABAPENTIN [Suspect]
     Active Substance: GABAPENTIN
     Route: 064
  3. ASPIRIN [Suspect]
     Active Substance: ASPIRIN
     Indication: Foetal exposure during pregnancy
     Dosage: 162 MILLIGRAM, QD
     Route: 064
  4. BETAMETHASONE [Suspect]
     Active Substance: BETAMETHASONE
     Indication: Foetal exposure during pregnancy
     Route: 064
  5. FUROSEMIDE [Suspect]
     Active Substance: FUROSEMIDE
     Indication: Foetal exposure during pregnancy
     Dosage: 10 MILLIGRAM, BID
     Route: 064
  6. HEPARIN SODIUM [Suspect]
     Active Substance: HEPARIN SODIUM
     Indication: Foetal exposure during pregnancy
     Dosage: UNK, BID(2 EVERY 1 DAYS)
     Route: 064
  7. LABETALOL HYDROCHLORIDE [Suspect]
     Active Substance: LABETALOL HYDROCHLORIDE
     Indication: Foetal exposure during pregnancy
     Route: 064
  8. METOCLOPRAMIDE [Suspect]
     Active Substance: METOCLOPRAMIDE
     Indication: Foetal exposure during pregnancy
     Route: 064
  9. MIRTAZAPINE [Suspect]
     Active Substance: MIRTAZAPINE
     Indication: Foetal exposure during pregnancy
     Dosage: 15 MILLIGRAM, QD( 1 EVERY 1 DAYS)
     Route: 064
  10. MIRTAZAPINE [Suspect]
     Active Substance: MIRTAZAPINE
     Route: 064
  11. ENOXAPARIN SODIUM [Suspect]
     Active Substance: ENOXAPARIN SODIUM
     Indication: Foetal exposure during pregnancy
     Route: 064
  12. NIFEDIPINE [Suspect]
     Active Substance: NIFEDIPINE
     Indication: Foetal exposure during pregnancy
     Dosage: 30 MILLIGRAM, QD(1 EVERY 1 DAYS)
     Route: 064
  13. ONDANSETRON [Suspect]
     Active Substance: ONDANSETRON
     Indication: Foetal exposure during pregnancy
     Route: 064
  14. ASPIRIN [Concomitant]
     Active Substance: ASPIRIN
     Route: 065
  15. BETAMETHASONE [Concomitant]
     Active Substance: BETAMETHASONE
     Route: 065
  16. FUROSEMIDE [Concomitant]
     Active Substance: FUROSEMIDE
     Route: 065
  17. GENTAMICIN [Concomitant]
     Active Substance: GENTAMICIN
     Route: 065
  18. HEPARIN SODIUM [Concomitant]
     Active Substance: HEPARIN SODIUM
     Route: 065
  19. LABETALOL [Concomitant]
     Active Substance: LABETALOL
     Route: 065
  20. MAGNESIUM SULFATE [Concomitant]
     Active Substance: MAGNESIUM SULFATE
     Route: 065
  21. METOCLOPRAMIDE [Concomitant]
     Active Substance: METOCLOPRAMIDE
     Route: 065
  22. NIFEDIPINE [Concomitant]
     Active Substance: NIFEDIPINE
     Route: 065
  23. ONDANSETRON HYDROCHLORIDE [Concomitant]
     Active Substance: ONDANSETRON HYDROCHLORIDE
     Route: 065
  24. VANCOMYCIN HYDROCHLORIDE [Concomitant]
     Active Substance: VANCOMYCIN HYDROCHLORIDE
     Route: 065

REACTIONS (5)
  - Low birth weight baby [Unknown]
  - Premature baby [Unknown]
  - Foetal exposure during pregnancy [Unknown]
  - Premature delivery [Unknown]
  - Maternal exposure during pregnancy [Unknown]
